FAERS Safety Report 8471746-3 (Version None)
Quarter: 2012Q2

REPORT INFORMATION
  Report Type: 
  Country: None (occurrence: None)
  Receive Date: 20120627
  Receipt Date: 20110131
  Transmission Date: 20120825
  Serious: Yes (Other)
  Sender: FDA-Public Use
  Company Number: BR-ROCHE-757489

PATIENT
  Sex: Female
  Weight: 74 kg

DRUGS (10)
  1. ALENIA (BRAZIL) [Concomitant]
  2. ATENOLOL [Concomitant]
  3. MORPHINE SULFATE [Interacting]
     Indication: PAIN
     Route: 065
  4. VALIUM [Suspect]
     Indication: PRODUCT USED FOR UNKNOWN INDICATION
     Route: 065
  5. ESCITALOPRAM [Concomitant]
  6. OMEPRAZOLE [Concomitant]
  7. ENALAPRIL MALEATE [Concomitant]
  8. CLONAZEPAM [Interacting]
     Indication: ANXIETY
     Dosage: OTHER INDICATION: PANIC SYNDROME
     Route: 048
     Dates: start: 20101201, end: 20110203
  9. SIMVASTATIN [Concomitant]
  10. LIPIDIL [Concomitant]

REACTIONS (5)
  - DRUG INTERACTION [None]
  - HYPOTENSION [None]
  - DRUG INEFFECTIVE [None]
  - HYPERTENSIVE CRISIS [None]
  - SOMNOLENCE [None]
